FAERS Safety Report 18997040 (Version 1)
Quarter: 2021Q1

REPORT INFORMATION
  Report Type: Report from Study
  Country: US (occurrence: US)
  Receive Date: 20210311
  Receipt Date: 20210311
  Transmission Date: 20210420
  Serious: No
  Sender: FDA-Public Use
  Company Number: NVSC2021US055374

PATIENT
  Sex: Female

DRUGS (1)
  1. ENTRESTO [Suspect]
     Active Substance: SACUBITRIL\VALSARTAN
     Indication: PRODUCT USED FOR UNKNOWN INDICATION
     Dosage: 1.5 DF, BID (49/51 MG OF SACUBITRIL AND VALSARTAN)
     Route: 048
     Dates: start: 202101

REACTIONS (2)
  - Frequent bowel movements [Unknown]
  - Wrong technique in product usage process [Unknown]
